FAERS Safety Report 4536917-7 (Version None)
Quarter: 2004Q4

REPORT INFORMATION
  Report Type: 
  Country: None (occurrence: None)
  Receive Date: 20041223
  Receipt Date: 20040923
  Transmission Date: 20050328
  Serious: Yes (Other)
  Sender: FDA-Public Use
  Company Number: DE-GLAXOSMITHKLINE-D0044765A

PATIENT
  Age: 47 Year
  Sex: Female

DRUGS (2)
  1. AUGMENTIN '250' [Suspect]
     Route: 050
     Dates: start: 20040630, end: 20040707
  2. ESTRADIOL [Concomitant]
     Dosage: 3PUFF PER DAY
     Route: 065

REACTIONS (2)
  - ALOPECIA [None]
  - BLOOD BILIRUBIN INCREASED [None]
